FAERS Safety Report 5787323-9 (Version None)
Quarter: 2008Q2

REPORT INFORMATION
  Report Type: 
  Country: None (occurrence: None)
  Receive Date: 20080625
  Receipt Date: 20070822
  Transmission Date: 20081010
  Serious: No
  Sender: FDA-Public Use
  Company Number: US-ASTRAZENECA-2007UW20119

PATIENT
  Age: 46 Year
  Sex: Male

DRUGS (1)
  1. PULMICORT-100 [Suspect]
     Route: 055
     Dates: start: 20070810

REACTIONS (4)
  - ANXIETY [None]
  - COLD SWEAT [None]
  - DYSPNOEA [None]
  - PALLOR [None]
